FAERS Safety Report 8954146 (Version 1)
Quarter: 2012Q4

REPORT INFORMATION
  Report Type: 
  Country: US (occurrence: US)
  Receive Date: 20121207
  Receipt Date: 20121207
  Transmission Date: 20130627
  Serious: Yes (Other)
  Sender: FDA-Public Use
  Company Number: US-ELI_LILLY_AND_COMPANY-US201211009102

PATIENT
  Sex: Male

DRUGS (4)
  1. HUMULIN REGULAR [Suspect]
     Indication: DIABETES MELLITUS
     Dosage: 40 u, each morning
     Dates: start: 1984
  2. HUMULIN REGULAR [Suspect]
     Dosage: 40 u, each evening
     Dates: start: 1984
  3. HUMULIN 30% REGULAR, 70% NPH [Suspect]
     Indication: DIABETES MELLITUS
     Dosage: 80 u, each morning
     Dates: start: 1985
  4. HUMULIN 30% REGULAR, 70% NPH [Suspect]
     Dosage: 80 u, each evening
     Dates: start: 1985

REACTIONS (10)
  - Heart rate irregular [Not Recovered/Not Resolved]
  - Vertebral column mass [Unknown]
  - Renal impairment [Unknown]
  - Rheumatoid arthritis [Not Recovered/Not Resolved]
  - Prostatic disorder [Unknown]
  - Neuropathy peripheral [Unknown]
  - Neuralgia [Unknown]
  - Cataract [Recovered/Resolved]
  - Cataract [Unknown]
  - Sleep apnoea syndrome [Unknown]
